FAERS Safety Report 4475577-0 (Version None)
Quarter: 2004Q4

REPORT INFORMATION
  Report Type: 
  Country: None (occurrence: None)
  Receive Date: 20041015
  Receipt Date: 20041008
  Transmission Date: 20050328
  Serious: Yes (Life-Threatening, Hospitalization)
  Sender: FDA-Public Use
  Company Number: US-MERCK-0410USA01461

PATIENT
  Age: 43 Year
  Sex: Male

DRUGS (10)
  1. LORCET-HD [Concomitant]
     Route: 065
  2. XANAX [Concomitant]
     Route: 065
  3. NEURONTIN [Concomitant]
     Route: 065
  4. PRINIVIL [Concomitant]
     Route: 065
  5. GLUCOPHAGE [Concomitant]
     Route: 065
  6. ACTOS [Concomitant]
     Route: 065
  7. ZANTAC [Concomitant]
     Route: 065
  8. VIOXX [Suspect]
     Indication: BACK PAIN
     Route: 048
     Dates: start: 20031201, end: 20040930
  9. ULTRAM [Concomitant]
     Route: 065
  10. EFFEXOR [Concomitant]
     Route: 065

REACTIONS (5)
  - BACK DISORDER [None]
  - CHEST PAIN [None]
  - COLD SWEAT [None]
  - HEADACHE [None]
  - HYPERTENSION [None]
